FAERS Safety Report 7762545-6 (Version None)
Quarter: 2011Q3

REPORT INFORMATION
  Report Type: 
  Country: None (occurrence: None)
  Receive Date: 20110920
  Receipt Date: 20110912
  Transmission Date: 20111222
  Serious: Yes (Other)
  Sender: FDA-Public Use
  Company Number: US-UCBSA-025968

PATIENT
  Sex: Female
  Weight: 86.18 kg

DRUGS (3)
  1. VIMPAT [Suspect]
     Indication: CONVULSION
     Route: 048
     Dates: start: 20110118, end: 20110120
  2. LEVOTHYROXINE SODIUM [Concomitant]
     Indication: HYPOTHYROIDISM
     Route: 048
     Dates: start: 19720101
  3. BENADRYL [Concomitant]
     Indication: SLEEP DISORDER
     Route: 048
     Dates: start: 20110101

REACTIONS (7)
  - CONVULSION [None]
  - HEADACHE [None]
  - PARAESTHESIA [None]
  - MATERNAL EXPOSURE DURING PREGNANCY [None]
  - EPILEPSY [None]
  - PAIN IN EXTREMITY [None]
  - NAUSEA [None]
